FAERS Safety Report 4754093-2 (Version None)
Quarter: 2005Q3

REPORT INFORMATION
  Report Type: 
  Country: None (occurrence: None)
  Receive Date: 20050826
  Receipt Date: 20050718
  Transmission Date: 20060218
  Serious: Yes (Hospitalization, Disabling)
  Sender: FDA-Public Use
  Company Number: US-MERCK-0507USA02958

PATIENT
  Age: 57 Year
  Sex: Male
  Weight: 122 kg

DRUGS (4)
  1. VIOXX [Suspect]
     Indication: ARTHRITIS
     Route: 048
     Dates: start: 20021101, end: 20040301
  2. NAPROSYN [Concomitant]
     Route: 065
  3. COZAAR [Concomitant]
     Route: 065
  4. ASPIRIN [Concomitant]
     Route: 065

REACTIONS (3)
  - BACK DISORDER [None]
  - MYOCARDIAL INFARCTION [None]
  - SKELETAL INJURY [None]
